FAERS Safety Report 7737998-X (Version None)
Quarter: 2011Q3

REPORT INFORMATION
  Report Type: 
  Country: None (occurrence: None)
  Receive Date: 20110908
  Receipt Date: 20110830
  Transmission Date: 20111222
  Serious: Yes (Hospitalization)
  Sender: FDA-Public Use
  Company Number: US-BAYER-201041791NA

PATIENT
  Age: 34 Year
  Sex: Female
  Weight: 97.959 kg

DRUGS (5)
  1. HYDROXYZINE [Concomitant]
     Indication: PRURITUS
     Dosage: 25 MG, PRN
     Dates: start: 20081001
  2. YASMIN [Suspect]
     Indication: PRODUCT USED FOR UNKNOWN INDICATION
     Dosage: UNK
     Route: 048
     Dates: start: 20030701, end: 20081005
  3. CALCIUM CARBONATE [Concomitant]
     Dosage: 1000 MG, QD
  4. BETAMETHASONE DIPROPIONATE [Concomitant]
     Indication: PRURITUS
     Dosage: UNK
     Dates: start: 20081001
  5. METHOCARBAMOL [Concomitant]
     Indication: MUSCLE RELAXANT THERAPY
     Dosage: UNK UNK, HS
     Dates: start: 20060101, end: 20080101

REACTIONS (8)
  - FEELING ABNORMAL [None]
  - PULMONARY EMBOLISM [None]
  - PAIN IN EXTREMITY [None]
  - THROMBOSIS [None]
  - THROMBOPHLEBITIS [None]
  - SKIN DISCOLOURATION [None]
  - DIZZINESS [None]
  - DYSPNOEA [None]
